FAERS Safety Report 9059166 (Version 1)
Quarter: 2013Q1

REPORT INFORMATION
  Report Type: Spontaneous
  Country: US (occurrence: US)
  Receive Date: 20130211
  Receipt Date: 20130211
  Transmission Date: 20140127
  Serious: No
  Sender: FDA-Public Use
  Company Number: US-BRISTOL-MYERS SQUIBB COMPANY-17115239

PATIENT
  Age: 70 Year
  Sex: Female

DRUGS (3)
  1. METFORMIN HCL [Suspect]
     Indication: TYPE 2 DIABETES MELLITUS
  2. LANTUS [Suspect]
     Indication: TYPE 2 DIABETES MELLITUS
     Dosage: 1DF:60 UNITS AT BEDTIME.EVERY NIGHT 4 YRS AGO ?100IU/ML
     Route: 058
     Dates: start: 2008
  3. PLAVIX [Concomitant]

REACTIONS (3)
  - Blood glucose decreased [Unknown]
  - Dizziness [Unknown]
  - Disorientation [Unknown]
